FAERS Safety Report 6631115-5 (Version None)
Quarter: 2010Q1

REPORT INFORMATION
  Report Type: 
  Country: None (occurrence: None)
  Receive Date: 20100309
  Receipt Date: 20100222
  Transmission Date: 20100710
  Serious: Yes (Hospitalization)
  Sender: FDA-Public Use
  Company Number: TPA2010A00653

PATIENT
  Age: 51 Year
  Sex: Female

DRUGS (3)
  1. KAPIDEX [Suspect]
     Indication: DYSPEPSIA
     Dosage: 60 MG, 1 IN 1 D, PER ORAL
     Route: 048
     Dates: start: 20100208, end: 20100209
  2. KAPIDEX [Suspect]
     Indication: GASTRIC ULCER
     Dosage: 60 MG, 1 IN 1 D, PER ORAL
     Route: 048
     Dates: start: 20100208, end: 20100209
  3. PRILOSEC [Concomitant]

REACTIONS (2)
  - HYPERSENSITIVITY [None]
  - LOSS OF CONSCIOUSNESS [None]
